FAERS Safety Report 22031660 (Version 2)
Quarter: 2023Q1

REPORT INFORMATION
  Report Type: Spontaneous
  Country: JP (occurrence: JP)
  Receive Date: 20230224
  Receipt Date: 20230323
  Transmission Date: 20230418
  Serious: Yes (Other)
  Sender: FDA-Public Use
  Company Number: JP-002147023-NVSJ2023JP003129

PATIENT
  Age: 70 Year
  Sex: Female

DRUGS (1)
  1. LUCENTIS [Suspect]
     Active Substance: RANIBIZUMAB
     Indication: Age-related macular degeneration
     Route: 050

REACTIONS (2)
  - Age-related macular degeneration [Unknown]
  - Disease progression [Unknown]
